FAERS Safety Report 9759560 (Version 2)
Quarter: 2015Q3

REPORT INFORMATION
  Report Type: Spontaneous
  Country: US (occurrence: US)
  Receive Date: 20131216
  Receipt Date: 20150805
  Transmission Date: 20151125
  Serious: No
  Sender: FDA-Public Use
  Company Number: US-GILEAD-2010-0028058

PATIENT
  Age: 51 Year
  Sex: Female
  Weight: 95.25 kg

DRUGS (26)
  1. LETAIRIS [Suspect]
     Active Substance: AMBRISENTAN
     Indication: PULMONARY ARTERIAL HYPERTENSION
     Route: 048
     Dates: start: 20090119
  2. AMBIEN [Concomitant]
     Active Substance: ZOLPIDEM TARTRATE
  3. VITAMIN B12 [Concomitant]
     Active Substance: CYANOCOBALAMIN
  4. NIACIN. [Concomitant]
     Active Substance: NIACIN
  5. PAXIL [Concomitant]
     Active Substance: PAROXETINE HYDROCHLORIDE
  6. COREG [Concomitant]
     Active Substance: CARVEDILOL
  7. XANAX [Concomitant]
     Active Substance: ALPRAZOLAM
  8. PHENERGAN [Concomitant]
     Active Substance: PROMETHAZINE HYDROCHLORIDE
  9. ELAVIL [Concomitant]
     Active Substance: AMITRIPTYLINE HYDROCHLORIDE
  10. HYDROCODONE BITARTRATE AND ACETAMINOPHEN [Concomitant]
     Active Substance: ACETAMINOPHEN\HYDROCODONE BITARTRATE
  11. COUMADIN [Concomitant]
     Active Substance: WARFARIN SODIUM
  12. OXYGEN. [Concomitant]
     Active Substance: OXYGEN
  13. ALTACE [Concomitant]
     Active Substance: RAMIPRIL
  14. ZOCOR [Concomitant]
     Active Substance: SIMVASTATIN
  15. BUMES [Concomitant]
  16. PYRIDIUM [Concomitant]
     Active Substance: PHENAZOPYRIDINE
  17. GABAPENTIN. [Concomitant]
     Active Substance: GABAPENTIN
  18. ASPIRIN. [Concomitant]
     Active Substance: ASPIRIN
  19. VICODIN ES [Concomitant]
     Active Substance: ACETAMINOPHEN\HYDROCODONE BITARTRATE
  20. ZOLOFT [Concomitant]
     Active Substance: SERTRALINE HYDROCHLORIDE
  21. COMPAZINE [Concomitant]
     Active Substance: PROCHLORPERAZINE MALEATE
  22. POTASSIUM CHLORIDE. [Concomitant]
     Active Substance: POTASSIUM CHLORIDE
  23. REVATIO [Concomitant]
     Active Substance: SILDENAFIL CITRATE
  24. ALDACTONE [Concomitant]
     Active Substance: SPIRONOLACTONE
  25. COLACE [Concomitant]
     Active Substance: DOCUSATE SODIUM
  26. TORADOL [Concomitant]
     Active Substance: KETOROLAC TROMETHAMINE

REACTIONS (1)
  - Nasal congestion [Unknown]
